FAERS Safety Report 9942993 (Version 1)
Quarter: 2014Q1

REPORT INFORMATION
  Report Type: Report from Study
  Country: US (occurrence: US)
  Receive Date: 20140303
  Receipt Date: 20140303
  Transmission Date: 20141002
  Serious: No
  Sender: FDA-Public Use
  Company Number: US-ABBVIE-13P-163-1044199-00

PATIENT
  Age: 60 Year
  Sex: Female

DRUGS (7)
  1. HUMIRA [Suspect]
     Indication: RHEUMATOID ARTHRITIS
  2. PREDNISONE [Concomitant]
     Indication: ARTHRITIS
     Dosage: DAILY
  3. CELEBREX [Concomitant]
     Indication: ARTHRITIS
     Dosage: DAILY
  4. SULFAZINE [Concomitant]
     Indication: ARTHRITIS
     Dosage: DAILY
  5. OMEPRAZOLE [Concomitant]
     Indication: GASTROOESOPHAGEAL REFLUX DISEASE
     Dosage: DAILY
  6. BONIVA [Concomitant]
     Indication: BONE DENSITY DECREASED
  7. FOSAMAX [Concomitant]
     Indication: BONE DENSITY DECREASED

REACTIONS (1)
  - Economic problem [Unknown]
